FAERS Safety Report 7475398-0 (Version None)
Quarter: 2011Q2

REPORT INFORMATION
  Report Type: 
  Country: None (occurrence: None)
  Receive Date: 20110512
  Receipt Date: 20110428
  Transmission Date: 20111010
  Serious: Yes (Hospitalization)
  Sender: FDA-Public Use
  Company Number: GR-MYLANLABS-2011S1009066

PATIENT
  Age: 80 Year
  Sex: Female

DRUGS (6)
  1. VITAMIN B COMPLEX CAP [Concomitant]
     Dosage: B1-B6-B12 COMPLEX
  2. METFORMIN HCL [Suspect]
     Indication: TYPE 2 DIABETES MELLITUS
     Route: 048
  3. QUINAPRIL [Concomitant]
  4. SITAGLIPTIN [Suspect]
     Indication: TYPE 2 DIABETES MELLITUS
     Route: 048
  5. HYDROCHLOROTHIAZIDE [Concomitant]
  6. SERTRALINE [Concomitant]

REACTIONS (1)
  - PEMPHIGOID [None]
